FAERS Safety Report 5284407-9 (Version None)
Quarter: 2007Q1

REPORT INFORMATION
  Report Type: 
  Country: None (occurrence: None)
  Receive Date: 20070327
  Receipt Date: 20070307
  Transmission Date: 20070707
  Serious: Yes (Hospitalization)
  Sender: FDA-Public Use
  Company Number: JPKYO-S-20070012

PATIENT
  Age: 68 Year
  Sex: Female

DRUGS (2)
  1. NAVELBINE [Suspect]
     Indication: METASTASES TO LUNG
     Dates: start: 20060425, end: 20061225
  2. XELODA [Concomitant]

REACTIONS (1)
  - OPTIC NEURITIS [None]
